FAERS Safety Report 20663866 (Version 48)
Quarter: 2025Q4

REPORT INFORMATION
  Report Type: Spontaneous
  Country: CA (occurrence: CA)
  Receive Date: 20220401
  Receipt Date: 20251130
  Transmission Date: 20260117
  Serious: Yes (Other)
  Sender: GLAXOSMITHKLINE
  Company Number: CA-GLAXOSMITHKLINE-CA2020AMR124077

PATIENT
  Age: 41 Year
  Sex: Female

DRUGS (311)
  1. SUMATRIPTAN [Suspect]
     Active Substance: SUMATRIPTAN
     Indication: Migraine
     Dosage: 100 MG
  2. SUMATRIPTAN [Suspect]
     Active Substance: SUMATRIPTAN
     Dosage: 60 MG
  3. SUMATRIPTAN [Suspect]
     Active Substance: SUMATRIPTAN
     Dosage: UNK
  4. ALBUTEROL [Suspect]
     Active Substance: ALBUTEROL
     Indication: Product used for unknown indication
     Dosage: 1 DF, QD
  5. ALBUTEROL [Suspect]
     Active Substance: ALBUTEROL
     Dosage: 100 MG
  6. ALBUTEROL [Suspect]
     Active Substance: ALBUTEROL
     Dosage: 1 DF, QID
  7. ALBUTEROL [Suspect]
     Active Substance: ALBUTEROL
     Dosage: 4 DF, QD
  8. ALBUTEROL [Suspect]
     Active Substance: ALBUTEROL
     Dosage: UNK
  9. ALBUTEROL [Suspect]
     Active Substance: ALBUTEROL
     Dosage: 10 MG
  10. ALBUTEROL [Suspect]
     Active Substance: ALBUTEROL
     Dosage: 4 DF
  11. ALBUTEROL [Suspect]
     Active Substance: ALBUTEROL
     Dosage: 4 DF
  12. ALBUTEROL [Suspect]
     Active Substance: ALBUTEROL
     Indication: Product used for unknown indication
     Dosage: UNK, METERED DOSE (AEROSOL)
  13. ALBUTEROL [Suspect]
     Active Substance: ALBUTEROL
     Dosage: 4 DF, QD
     Route: 065
  14. ALBUTEROL [Suspect]
     Active Substance: ALBUTEROL
     Dosage: 1 DF, QD
     Route: 065
  15. ALBUTEROL SULFATE [Suspect]
     Active Substance: ALBUTEROL SULFATE
     Indication: Product used for unknown indication
     Dosage: 1 DF, QD
  16. AMOXICILLIN TRIHYDRATE [Suspect]
     Active Substance: AMOXICILLIN
     Indication: Product used for unknown indication
     Dosage: 2 DF, TID
     Route: 065
  17. AMOXICILLIN TRIHYDRATE [Suspect]
     Active Substance: AMOXICILLIN
     Dosage: 2 DF, QD
     Route: 065
  18. AMOXICILLIN TRIHYDRATE [Suspect]
     Active Substance: AMOXICILLIN
     Dosage: 6 DF, QD
     Route: 065
  19. AMOXICILLIN TRIHYDRATE [Suspect]
     Active Substance: AMOXICILLIN
     Dosage: 3 DF, QD
     Route: 065
  20. AMOXICILLIN TRIHYDRATE [Suspect]
     Active Substance: AMOXICILLIN
     Dosage: 6 DF, TID
     Route: 065
  21. CIPROFLOXACIN [Suspect]
     Active Substance: CIPROFLOXACIN
     Indication: Migraine
     Dosage: 1 DF, BID
     Route: 065
  22. CIPROFLOXACIN [Suspect]
     Active Substance: CIPROFLOXACIN
     Dosage: 500 MG
     Route: 065
  23. CIPROFLOXACIN [Suspect]
     Active Substance: CIPROFLOXACIN
     Dosage: 1 DF, QD
  24. CIPROFLOXACIN [Suspect]
     Active Substance: CIPROFLOXACIN
     Dosage: 1 DF, BID
     Route: 065
  25. CIPROFLOXACIN [Suspect]
     Active Substance: CIPROFLOXACIN
     Dosage: 2 DF, BID
     Route: 065
  26. CIPROFLOXACIN [Suspect]
     Active Substance: CIPROFLOXACIN
     Dosage: 2 DF, QD
     Route: 065
  27. RABEPRAZOLE SODIUM [Suspect]
     Active Substance: RABEPRAZOLE SODIUM
     Indication: Migraine
     Dosage: 1 DF, BID
  28. RABEPRAZOLE SODIUM [Suspect]
     Active Substance: RABEPRAZOLE SODIUM
     Dosage: 10 MG, BID
  29. RABEPRAZOLE SODIUM [Suspect]
     Active Substance: RABEPRAZOLE SODIUM
     Dosage: 1 DF, 12 HOURS
  30. RABEPRAZOLE SODIUM [Suspect]
     Active Substance: RABEPRAZOLE SODIUM
     Dosage: 2 DF, QD
     Route: 065
  31. NEXIUM [Suspect]
     Active Substance: ESOMEPRAZOLE MAGNESIUM
     Indication: Product used for unknown indication
     Dosage: DELAYED RELEASE
  32. TRAMADOL [Suspect]
     Active Substance: TRAMADOL
     Indication: Product used for unknown indication
     Dosage: UNK
  33. PREDNISOLONE [Suspect]
     Active Substance: PREDNISOLONE
     Indication: Product used for unknown indication
  34. ESCITALOPRAM [Suspect]
     Active Substance: ESCITALOPRAM OXALATE
     Indication: Migraine
     Dosage: 10 MG
  35. METOCLOPRAMIDE [Suspect]
     Active Substance: METOCLOPRAMIDE
     Indication: Migraine
     Dosage: UNK
     Route: 065
  36. RIZATRIPTAN BENZOATE [Suspect]
     Active Substance: RIZATRIPTAN BENZOATE
     Indication: Migraine
     Dosage: 10 MG, QD
     Route: 065
  37. RIZATRIPTAN BENZOATE [Suspect]
     Active Substance: RIZATRIPTAN BENZOATE
     Dosage: 1 DF, QD
     Route: 065
  38. RIZATRIPTAN BENZOATE [Suspect]
     Active Substance: RIZATRIPTAN BENZOATE
     Dosage: 1 DF, QD
     Route: 065
  39. SERTRALINE HYDROCHLORIDE [Suspect]
     Active Substance: SERTRALINE HYDROCHLORIDE
     Indication: Migraine
     Dosage: 50 MG
     Route: 065
  40. SERTRALINE HYDROCHLORIDE [Suspect]
     Active Substance: SERTRALINE HYDROCHLORIDE
     Dosage: 500 MG
     Route: 065
  41. VENLAFAXINE [Suspect]
     Active Substance: VENLAFAXINE HYDROCHLORIDE
     Indication: Migraine
     Dosage: 75 MG
     Route: 065
  42. VENLAFAXINE [Suspect]
     Active Substance: VENLAFAXINE HYDROCHLORIDE
     Dosage: 150 MG
     Route: 065
  43. CLOTRIMAZOLE [Suspect]
     Active Substance: CLOTRIMAZOLE
     Indication: Product used for unknown indication
     Dosage: UNK
  44. TRAMADOL HYDROCHLORIDE [Suspect]
     Active Substance: TRAMADOL HYDROCHLORIDE
     Indication: Migraine
     Dosage: UNK
     Route: 065
  45. RABEPRAZOLE [Suspect]
     Active Substance: RABEPRAZOLE
     Indication: Migraine
     Dosage: 1 DF, BID
  46. RABEPRAZOLE [Suspect]
     Active Substance: RABEPRAZOLE
     Dosage: 1 DF, BID
     Route: 065
  47. RABEPRAZOLE [Suspect]
     Active Substance: RABEPRAZOLE
     Dosage: 1 DF, BID
     Route: 065
  48. RABEPRAZOLE [Suspect]
     Active Substance: RABEPRAZOLE
     Dosage: 1 DF, BID
     Route: 065
  49. RABEPRAZOLE [Suspect]
     Active Substance: RABEPRAZOLE
     Dosage: 1 DF, BID
     Route: 065
  50. RABEPRAZOLE [Suspect]
     Active Substance: RABEPRAZOLE
     Dosage: 1 DF, BID
     Route: 065
  51. RABEPRAZOLE [Suspect]
     Active Substance: RABEPRAZOLE
     Dosage: 1 DF, BID
     Route: 065
  52. RABEPRAZOLE [Suspect]
     Active Substance: RABEPRAZOLE
     Dosage: 1 DF, BID
     Route: 065
  53. RABEPRAZOLE [Suspect]
     Active Substance: RABEPRAZOLE
     Dosage: 1 DF, BID
     Route: 065
  54. RABEPRAZOLE [Suspect]
     Active Substance: RABEPRAZOLE
     Dosage: 1 DF, BID
     Route: 065
  55. RABEPRAZOLE [Suspect]
     Active Substance: RABEPRAZOLE
     Dosage: 1 DF, BID
     Route: 065
  56. RABEPRAZOLE [Suspect]
     Active Substance: RABEPRAZOLE
     Dosage: 1 DF, BID
     Route: 065
  57. RABEPRAZOLE [Suspect]
     Active Substance: RABEPRAZOLE
     Dosage: 1 DF, BID
     Route: 065
  58. RABEPRAZOLE [Suspect]
     Active Substance: RABEPRAZOLE
     Dosage: 1 DF, BID
     Route: 065
  59. RABEPRAZOLE [Suspect]
     Active Substance: RABEPRAZOLE
     Dosage: 1 DF, BID
     Route: 065
  60. RABEPRAZOLE [Suspect]
     Active Substance: RABEPRAZOLE
     Dosage: 1 DF, BID
     Route: 065
  61. RABEPRAZOLE [Suspect]
     Active Substance: RABEPRAZOLE
     Dosage: 1 DF, BID
     Route: 065
  62. RABEPRAZOLE [Suspect]
     Active Substance: RABEPRAZOLE
     Dosage: 1 DF, BID
     Route: 065
  63. RABEPRAZOLE [Suspect]
     Active Substance: RABEPRAZOLE
     Dosage: 1 DF, BID
     Route: 065
  64. RABEPRAZOLE [Suspect]
     Active Substance: RABEPRAZOLE
     Dosage: 1 DF, BID
     Route: 065
  65. RABEPRAZOLE [Suspect]
     Active Substance: RABEPRAZOLE
     Dosage: 2 DF, QD
     Route: 065
  66. RABEPRAZOLE [Suspect]
     Active Substance: RABEPRAZOLE
     Dosage: 10 MG
     Route: 065
  67. RIZATRIPTAN [Suspect]
     Active Substance: RIZATRIPTAN
     Indication: Migraine
     Dosage: 1 DF, QD
  68. RIZATRIPTAN [Suspect]
     Active Substance: RIZATRIPTAN
     Dosage: 10 MG, QD
  69. RIZATRIPTAN [Suspect]
     Active Substance: RIZATRIPTAN
     Dosage: 10 UG, QD
     Route: 065
  70. RIZATRIPTAN [Suspect]
     Active Substance: RIZATRIPTAN
     Dosage: UNK
  71. SERTRALINE [Suspect]
     Active Substance: SERTRALINE HYDROCHLORIDE
     Indication: Migraine
     Dosage: 50 MG
  72. DULOXETINE [Suspect]
     Active Substance: DULOXETINE
     Indication: Migraine
     Dosage: 60 MG
     Route: 065
  73. PROPRANOLOL HYDROCHLORIDE [Suspect]
     Active Substance: PROPRANOLOL HYDROCHLORIDE
     Indication: Migraine
     Dosage: 40 MG
  74. PROPRANOLOL HYDROCHLORIDE [Suspect]
     Active Substance: PROPRANOLOL HYDROCHLORIDE
     Dosage: 80 MG
  75. PROPRANOLOL HYDROCHLORIDE [Suspect]
     Active Substance: PROPRANOLOL HYDROCHLORIDE
     Dosage: 80 MG
  76. ESOMEPRAZOLE [Suspect]
     Active Substance: ESOMEPRAZOLE
     Indication: Migraine
     Dosage: 40 MG
     Route: 065
  77. AZITHROMYCIN ANHYDROUS [Suspect]
     Active Substance: AZITHROMYCIN ANHYDROUS
     Indication: Migraine
     Dosage: 500 MG
     Route: 065
  78. AZITHROMYCIN ANHYDROUS [Suspect]
     Active Substance: AZITHROMYCIN ANHYDROUS
     Dosage: UNK
     Route: 065
  79. AZITHROMYCIN ANHYDROUS [Suspect]
     Active Substance: AZITHROMYCIN ANHYDROUS
     Dosage: 500 MG
     Route: 065
  80. AZITHROMYCIN ANHYDROUS [Suspect]
     Active Substance: AZITHROMYCIN ANHYDROUS
     Dosage: 500 MG, QD
     Route: 065
  81. AZITHROMYCIN ANHYDROUS [Suspect]
     Active Substance: AZITHROMYCIN ANHYDROUS
     Dosage: 50 MG
     Route: 065
  82. SCOPOLAMINE HYDROBROMIDE [Suspect]
     Active Substance: SCOPOLAMINE HYDROBROMIDE
     Indication: Migraine
     Dosage: UNK LIQUID
  83. CIPROFLOXACIN LACTATE [Suspect]
     Active Substance: CIPROFLOXACIN LACTATE
     Indication: Migraine
     Dosage: 500 MG
     Route: 065
  84. CIPROFLOXACIN LACTATE [Suspect]
     Active Substance: CIPROFLOXACIN LACTATE
     Dosage: 1 DF
     Route: 065
  85. CIPROFLOXACIN LACTATE [Suspect]
     Active Substance: CIPROFLOXACIN LACTATE
     Dosage: 2 DF, BID
     Route: 065
  86. CIPROFLOXACIN LACTATE [Suspect]
     Active Substance: CIPROFLOXACIN LACTATE
     Dosage: 1 DF, BID
     Route: 065
  87. CIPROFLOXACIN LACTATE [Suspect]
     Active Substance: CIPROFLOXACIN LACTATE
     Dosage: UNK
     Route: 065
  88. MOMETASONE [Suspect]
     Active Substance: MOMETASONE
     Indication: Migraine
     Dosage: 2 DF, TID, SPRAY.METERED DOSE
  89. MOMETASONE [Suspect]
     Active Substance: MOMETASONE
     Dosage: UNK
  90. MOMETASONE [Suspect]
     Active Substance: MOMETASONE
     Dosage: 2 DF, TID
  91. MOMETASONE [Suspect]
     Active Substance: MOMETASONE
     Dosage: 2 DF, BID
  92. MOMETASONE [Suspect]
     Active Substance: MOMETASONE
     Dosage: 10 MG
     Route: 065
  93. MOMETASONE [Suspect]
     Active Substance: MOMETASONE
     Dosage: 6 DF, TID
     Route: 065
  94. MOMETASONE [Suspect]
     Active Substance: MOMETASONE
     Dosage: UNK
     Route: 065
  95. AMOXICILLIN [Suspect]
     Active Substance: AMOXICILLIN
     Indication: Product used for unknown indication
     Dosage: 2 DF, TID
     Route: 065
  96. AMOXICILLIN [Suspect]
     Active Substance: AMOXICILLIN
     Dosage: UNK
     Route: 065
  97. AMOXICILLIN [Suspect]
     Active Substance: AMOXICILLIN
     Dosage: 6 DF, QD
     Route: 065
  98. AMOXICILLIN [Suspect]
     Active Substance: AMOXICILLIN
     Dosage: 2 DF
     Route: 065
  99. AMOXICILLIN [Suspect]
     Active Substance: AMOXICILLIN
     Dosage: 2 DF, QD
     Route: 065
  100. CLOTRIMAZOLE\FLUCONAZOLE [Suspect]
     Active Substance: CLOTRIMAZOLE\FLUCONAZOLE
     Indication: Product used for unknown indication
     Dosage: 1 DF, QD
  101. TRAMADOL HYDROCHLORIDE [Suspect]
     Active Substance: TRAMADOL HYDROCHLORIDE
     Indication: Product used for unknown indication
     Dosage: UNK
  102. INDOMETHACIN [Suspect]
     Active Substance: INDOMETHACIN
     Indication: Migraine
     Dosage: 1 DF
  103. INDOMETHACIN [Suspect]
     Active Substance: INDOMETHACIN
     Dosage: 2 DF
  104. INDOMETHACIN [Suspect]
     Active Substance: INDOMETHACIN
     Dosage: 1 DF, BID
  105. LANSOPRAZOLE [Suspect]
     Active Substance: LANSOPRAZOLE
     Indication: Migraine
     Dosage: 1 DF, QD
  106. TOPAMAX [Suspect]
     Active Substance: TOPIRAMATE
     Indication: Migraine
     Dosage: 25 MG
  107. LISINOPRIL [Suspect]
     Active Substance: LISINOPRIL
     Indication: Migraine
     Dosage: 1 DF, QD
  108. LISINOPRIL [Suspect]
     Active Substance: LISINOPRIL
     Dosage: 2 DF, QD
  109. LISINOPRIL [Suspect]
     Active Substance: LISINOPRIL
     Dosage: 2 DF
  110. LISINOPRIL [Suspect]
     Active Substance: LISINOPRIL
     Dosage: 1 DF, QD
  111. LISINOPRIL [Suspect]
     Active Substance: LISINOPRIL
     Dosage: 1 DF, QD
  112. PREDNISONE [Suspect]
     Active Substance: PREDNISONE
     Indication: Product used for unknown indication
     Dosage: 2 DF, QD
  113. METRONIDAZOLE [Suspect]
     Active Substance: METRONIDAZOLE
     Indication: Migraine
     Dosage: 5 MG
  114. TRIMETHOPRIM [Suspect]
     Active Substance: TRIMETHOPRIM
     Indication: Product used for unknown indication
     Dosage: 6 DF, QD
  115. TRIMETHOPRIM [Suspect]
     Active Substance: TRIMETHOPRIM
     Dosage: 1 DF, TID
  116. ZOLMIPTRIPTAN [Suspect]
     Active Substance: ZOLMITRIPTAN
     Indication: Product used for unknown indication
     Dosage: UNK
  117. ZOPICLONE [Suspect]
     Active Substance: ZOPICLONE
     Indication: Migraine
     Dosage: 5 DF
  118. ZOPICLONE [Suspect]
     Active Substance: ZOPICLONE
     Dosage: 50 MG
  119. ZOPICLONE [Suspect]
     Active Substance: ZOPICLONE
     Dosage: 1 DF
  120. ZOPICLONE [Suspect]
     Active Substance: ZOPICLONE
     Dosage: 1 DF, QD
  121. ZOPICLONE [Suspect]
     Active Substance: ZOPICLONE
     Dosage: 1 DF, QD
  122. ZOPICLONE [Suspect]
     Active Substance: ZOPICLONE
     Dosage: 1 DF, QD
  123. ZOPICLONE [Suspect]
     Active Substance: ZOPICLONE
     Dosage: 1 DF, QD
  124. ZOPICLONE [Suspect]
     Active Substance: ZOPICLONE
     Dosage: 1 DF, QD
  125. ZOPICLONE [Suspect]
     Active Substance: ZOPICLONE
     Dosage: 1 DF, QD
  126. ZOPICLONE [Suspect]
     Active Substance: ZOPICLONE
     Dosage: 1 DF, QD
  127. ZOPICLONE [Suspect]
     Active Substance: ZOPICLONE
     Dosage: 1 DF, QD
  128. ZOPICLONE [Suspect]
     Active Substance: ZOPICLONE
     Dosage: 1 DF, QD
  129. ZOPICLONE [Suspect]
     Active Substance: ZOPICLONE
     Dosage: 1 DF, QD
  130. ZOPICLONE [Suspect]
     Active Substance: ZOPICLONE
     Dosage: 1 DF, QD
  131. ZOPICLONE [Suspect]
     Active Substance: ZOPICLONE
     Dosage: 1 DF, QD
  132. ZOPICLONE [Suspect]
     Active Substance: ZOPICLONE
     Dosage: 1 DF, QD
  133. ZOPICLONE [Suspect]
     Active Substance: ZOPICLONE
     Dosage: 1 DF, QD
  134. ZOPICLONE [Suspect]
     Active Substance: ZOPICLONE
     Dosage: 1 DF, QD
  135. ZOPICLONE [Suspect]
     Active Substance: ZOPICLONE
     Dosage: 1 DF, QD
  136. ZOPICLONE [Suspect]
     Active Substance: ZOPICLONE
     Dosage: 5 MG
  137. ACETAMINOPHEN [Suspect]
     Active Substance: ACETAMINOPHEN
     Indication: Product used for unknown indication
     Dosage: 100 MG
  138. ACETAMINOPHEN [Suspect]
     Active Substance: ACETAMINOPHEN
     Dosage: 10 MG
  139. BOTULINUM TOXIN TYPE A [Suspect]
     Active Substance: BOTULINUM TOXIN TYPE A
     Indication: Product used for unknown indication
     Dosage: 200 IU
  140. BOTULINUM TOXIN TYPE A [Suspect]
     Active Substance: BOTULINUM TOXIN TYPE A
     Dosage: 200 IU
  141. BOTULINUM TOXIN TYPE A [Suspect]
     Active Substance: BOTULINUM TOXIN TYPE A
     Dosage: 200 IU
  142. BOTULINUM TOXIN TYPE A [Suspect]
     Active Substance: BOTULINUM TOXIN TYPE A
     Dosage: 200 IU
  143. BOTULINUM TOXIN TYPE A [Suspect]
     Active Substance: BOTULINUM TOXIN TYPE A
     Dosage: 200 IU
  144. CIPROFLOXACIN HYDROCHLORIDE [Suspect]
     Active Substance: CIPROFLOXACIN HYDROCHLORIDE
     Indication: Migraine
     Dosage: 1 DF
  145. CIPROFLOXACIN HYDROCHLORIDE [Suspect]
     Active Substance: CIPROFLOXACIN HYDROCHLORIDE
     Dosage: 500 MG, QD
  146. CIPROFLOXACIN HYDROCHLORIDE [Suspect]
     Active Substance: CIPROFLOXACIN HYDROCHLORIDE
     Dosage: 1 DF, QD
  147. CIPROFLOXACIN HYDROCHLORIDE [Suspect]
     Active Substance: CIPROFLOXACIN HYDROCHLORIDE
     Dosage: 1 DF, BID
  148. CIPROFLOXACIN HYDROCHLORIDE [Suspect]
     Active Substance: CIPROFLOXACIN HYDROCHLORIDE
     Dosage: UNK UNK, QD
  149. CIPROFLOXACIN HYDROCHLORIDE [Suspect]
     Active Substance: CIPROFLOXACIN HYDROCHLORIDE
     Dosage: 2 DF, QD
  150. CLARITHROMYCIN [Suspect]
     Active Substance: CLARITHROMYCIN
     Indication: Product used for unknown indication
     Dosage: 1 DF, BID
  151. CLARITHROMYCIN [Suspect]
     Active Substance: CLARITHROMYCIN
     Dosage: 2 DF, QD
  152. CLARITHROMYCIN [Suspect]
     Active Substance: CLARITHROMYCIN
     Dosage: 1 DF
  153. CLARITHROMYCIN [Suspect]
     Active Substance: CLARITHROMYCIN
     Dosage: 1 DF, QD
  154. CODEINE [Suspect]
     Active Substance: CODEINE
     Indication: Migraine
     Dosage: UNK UNK, QD
  155. CODEINE [Suspect]
     Active Substance: CODEINE
     Dosage: 40 MG
  156. CODEINE SULFATE [Suspect]
     Active Substance: CODEINE SULFATE
     Indication: Migraine
     Dosage: 40 MG
  157. AZITHROMYCIN [Suspect]
     Active Substance: AZITHROMYCIN
     Indication: Migraine
     Dosage: 500 MG
     Route: 065
  158. CYMBALTA [Suspect]
     Active Substance: DULOXETINE HYDROCHLORIDE
     Indication: Product used for unknown indication
     Dosage: 1 DF
  159. CYMBALTA [Suspect]
     Active Substance: DULOXETINE HYDROCHLORIDE
     Dosage: 2 DF
  160. CYMBALTA [Suspect]
     Active Substance: DULOXETINE HYDROCHLORIDE
     Dosage: 2 DF, QD
  161. DEXAMETHASONE [Suspect]
     Active Substance: DEXAMETHASONE
     Indication: Migraine
     Dosage: 2 MG, QD (LIQUID)
  162. DEXAMETHASONE [Suspect]
     Active Substance: DEXAMETHASONE
     Dosage: 1 DF, QD
  163. DULOXETINE HYDROCHLORIDE [Suspect]
     Active Substance: DULOXETINE HYDROCHLORIDE
     Indication: Migraine
     Dosage: 60 MG, QD (DELAYED RELEASED)
  164. ESCITALOPRAM OXALATE [Suspect]
     Active Substance: ESCITALOPRAM OXALATE
     Indication: Migraine
     Dosage: 10 MG
     Route: 065
  165. ESOMEPRAZOLE MAGNESIUM [Suspect]
     Active Substance: ESOMEPRAZOLE MAGNESIUM
     Indication: Migraine
     Dosage: 40 MG
     Route: 065
  166. ESOMEPRAZOLE MAGNESIUM [Suspect]
     Active Substance: ESOMEPRAZOLE MAGNESIUM
     Dosage: 10 MG
     Route: 065
  167. FLUCONAZOLE [Suspect]
     Active Substance: FLUCONAZOLE
     Indication: Migraine
     Dosage: 1 DF, QD
     Route: 065
  168. FLUCONAZOLE [Suspect]
     Active Substance: FLUCONAZOLE
     Dosage: 40 MG
     Route: 065
  169. FLUCONAZOLE [Suspect]
     Active Substance: FLUCONAZOLE
     Dosage: 1 DF
     Route: 065
  170. HYDROMORPHONE HYDROCHLORIDE [Suspect]
     Active Substance: HYDROMORPHONE HYDROCHLORIDE
     Indication: Migraine
     Dosage: 1 DF, BID
     Route: 065
  171. HYDROMORPHONE HYDROCHLORIDE [Suspect]
     Active Substance: HYDROMORPHONE HYDROCHLORIDE
     Dosage: 1 DF, BID
     Route: 065
  172. HYDROMORPHONE HYDROCHLORIDE [Suspect]
     Active Substance: HYDROMORPHONE HYDROCHLORIDE
     Dosage: 1 DF, BID
     Route: 065
  173. HYDROMORPHONE HYDROCHLORIDE [Suspect]
     Active Substance: HYDROMORPHONE HYDROCHLORIDE
     Dosage: 1 DF, BID
     Route: 065
  174. HYDROMORPHONE HYDROCHLORIDE [Suspect]
     Active Substance: HYDROMORPHONE HYDROCHLORIDE
     Dosage: 1 DF, BID
     Route: 065
  175. HYDROMORPHONE HYDROCHLORIDE [Suspect]
     Active Substance: HYDROMORPHONE HYDROCHLORIDE
     Dosage: 2 DF, QD
     Route: 065
  176. HYDROMORPHONE HYDROCHLORIDE [Suspect]
     Active Substance: HYDROMORPHONE HYDROCHLORIDE
     Dosage: 1 DF, BID
     Route: 065
  177. HYDROMORPHONE HYDROCHLORIDE [Suspect]
     Active Substance: HYDROMORPHONE HYDROCHLORIDE
     Dosage: 2 DF
     Route: 065
  178. HYDROMORPHONE HYDROCHLORIDE [Suspect]
     Active Substance: HYDROMORPHONE HYDROCHLORIDE
     Dosage: 1 DF
     Route: 065
  179. HYDROMORPHONE HYDROCHLORIDE [Suspect]
     Active Substance: HYDROMORPHONE HYDROCHLORIDE
     Dosage: 1 DF
     Route: 065
  180. HYDROMORPHONE HYDROCHLORIDE [Suspect]
     Active Substance: HYDROMORPHONE HYDROCHLORIDE
     Dosage: 1 DF
     Route: 065
  181. HYDROMORPHONE HYDROCHLORIDE [Suspect]
     Active Substance: HYDROMORPHONE HYDROCHLORIDE
     Dosage: 1 DF
     Route: 065
  182. HYDROMORPHONE HYDROCHLORIDE [Suspect]
     Active Substance: HYDROMORPHONE HYDROCHLORIDE
     Dosage: 1 DF
     Route: 065
  183. HYDROMORPHONE HYDROCHLORIDE [Suspect]
     Active Substance: HYDROMORPHONE HYDROCHLORIDE
     Dosage: 1 DF
     Route: 065
  184. HYDROMORPHONE HYDROCHLORIDE [Suspect]
     Active Substance: HYDROMORPHONE HYDROCHLORIDE
     Dosage: 1 DF
     Route: 065
  185. HYDROMORPHONE HYDROCHLORIDE [Suspect]
     Active Substance: HYDROMORPHONE HYDROCHLORIDE
     Dosage: 1 DF
     Route: 065
  186. HYDROMORPHONE HYDROCHLORIDE [Suspect]
     Active Substance: HYDROMORPHONE HYDROCHLORIDE
     Dosage: 1 DF
     Route: 065
  187. HYDROMORPHONE HYDROCHLORIDE [Suspect]
     Active Substance: HYDROMORPHONE HYDROCHLORIDE
     Dosage: 1 DF
     Route: 065
  188. HYDROMORPHONE HYDROCHLORIDE [Suspect]
     Active Substance: HYDROMORPHONE HYDROCHLORIDE
     Dosage: 1 DF
     Route: 065
  189. HYDROMORPHONE HYDROCHLORIDE [Suspect]
     Active Substance: HYDROMORPHONE HYDROCHLORIDE
     Dosage: 1 DF
     Route: 065
  190. HYDROMORPHONE HYDROCHLORIDE [Suspect]
     Active Substance: HYDROMORPHONE HYDROCHLORIDE
     Dosage: 1 DF
     Route: 065
  191. HYDROMORPHONE HYDROCHLORIDE [Suspect]
     Active Substance: HYDROMORPHONE HYDROCHLORIDE
     Dosage: 1 DF
     Route: 065
  192. HYDROMORPHONE HYDROCHLORIDE [Suspect]
     Active Substance: HYDROMORPHONE HYDROCHLORIDE
     Dosage: 1 DF
     Route: 065
  193. HYDROMORPHONE HYDROCHLORIDE [Suspect]
     Active Substance: HYDROMORPHONE HYDROCHLORIDE
     Dosage: 1 DF
     Route: 065
  194. HYDROMORPHONE HYDROCHLORIDE [Suspect]
     Active Substance: HYDROMORPHONE HYDROCHLORIDE
     Dosage: 2 DF, QD
     Route: 065
  195. HYDROMORPHONE [Suspect]
     Active Substance: HYDROMORPHONE
     Indication: Migraine
     Dosage: 1 DF, BID
     Route: 065
  196. SCOPOLAMINE [Suspect]
     Active Substance: SCOPOLAMINE
     Indication: Migraine
     Dosage: 1 DF
     Route: 065
  197. SCOPOLAMINE [Suspect]
     Active Substance: SCOPOLAMINE
     Dosage: 10 MG
     Route: 065
  198. SCOPOLAMINE [Suspect]
     Active Substance: SCOPOLAMINE
     Dosage: 2 DF
     Route: 065
  199. BUTYLSCOPOLAMINE BROMIDE [Suspect]
     Active Substance: BUTYLSCOPOLAMINE BROMIDE
     Indication: Migraine
     Dosage: 2 DF
     Route: 065
  200. BUTYLSCOPOLAMINE BROMIDE [Suspect]
     Active Substance: BUTYLSCOPOLAMINE BROMIDE
     Dosage: 10 MG
     Route: 065
  201. BUTYLSCOPOLAMINE BROMIDE [Suspect]
     Active Substance: BUTYLSCOPOLAMINE BROMIDE
     Dosage: 1 DF
     Route: 065
  202. BUTYLSCOPOLAMINE BROMIDE [Suspect]
     Active Substance: BUTYLSCOPOLAMINE BROMIDE
     Dosage: 1 DF, QD
     Route: 065
  203. INDOMETHACIN [Suspect]
     Active Substance: INDOMETHACIN
     Indication: Migraine
     Dosage: 1 DF
  204. INDOMETHACIN [Suspect]
     Active Substance: INDOMETHACIN
     Dosage: 1 DF
  205. INDOMETHACIN [Suspect]
     Active Substance: INDOMETHACIN
     Dosage: 1 DF
  206. INDOMETHACIN [Suspect]
     Active Substance: INDOMETHACIN
     Dosage: 1 DF
  207. INDOMETHACIN [Suspect]
     Active Substance: INDOMETHACIN
     Dosage: 1 DF
  208. INDOMETHACIN [Suspect]
     Active Substance: INDOMETHACIN
     Dosage: 1 DF
  209. INDOMETHACIN [Suspect]
     Active Substance: INDOMETHACIN
     Dosage: 1 DF
  210. INDOMETHACIN [Suspect]
     Active Substance: INDOMETHACIN
     Dosage: 1 DF, BID
  211. INDOMETHACIN [Suspect]
     Active Substance: INDOMETHACIN
     Dosage: 1 DF, BID
  212. INDOMETHACIN [Suspect]
     Active Substance: INDOMETHACIN
     Dosage: 1 DF, BID
  213. INDOMETHACIN [Suspect]
     Active Substance: INDOMETHACIN
     Dosage: 2 DF, QD
  214. MAXALT [Suspect]
     Active Substance: RIZATRIPTAN BENZOATE
     Indication: Migraine
     Dosage: 10 MG
     Route: 065
  215. METOCLOPRAMIDE [Suspect]
     Active Substance: METOCLOPRAMIDE
     Indication: Migraine
     Dosage: 5 MG
     Route: 065
  216. METOCLOPRAMIDE [Suspect]
     Active Substance: METOCLOPRAMIDE
     Dosage: 10 MG
     Route: 065
  217. METOCLOPRAMIDE HYDROCHLORIDE [Suspect]
     Active Substance: METOCLOPRAMIDE HYDROCHLORIDE
     Indication: Product used for unknown indication
     Dosage: 5 MG
     Route: 065
  218. METOCLOPRAMIDE HYDROCHLORIDE [Suspect]
     Active Substance: METOCLOPRAMIDE HYDROCHLORIDE
     Dosage: 10 MG
     Route: 065
  219. MOMETASONE FUROATE [Suspect]
     Active Substance: MOMETASONE FUROATE
     Indication: Migraine
     Dosage: 6 DF
     Route: 065
  220. MOMETASONE FUROATE [Suspect]
     Active Substance: MOMETASONE FUROATE
     Dosage: 2 DF, BID
     Route: 065
  221. MOMETASONE FUROATE [Suspect]
     Active Substance: MOMETASONE FUROATE
     Dosage: 6 DF, TID
     Route: 065
  222. MOMETASONE FUROATE [Suspect]
     Active Substance: MOMETASONE FUROATE
     Dosage: 2 DF, BID
     Route: 065
  223. MOMETASONE FUROATE [Suspect]
     Active Substance: MOMETASONE FUROATE
     Dosage: 2 DF, TID
     Route: 065
  224. MOMETASONE FUROATE [Suspect]
     Active Substance: MOMETASONE FUROATE
     Dosage: 1 DF, TID
     Route: 065
  225. MOMETASONE FUROATE [Suspect]
     Active Substance: MOMETASONE FUROATE
     Dosage: 10 MG
     Route: 065
  226. PROPRANOLOL [Suspect]
     Active Substance: PROPRANOLOL HYDROCHLORIDE
     Indication: Migraine
     Dosage: 40 MG
     Route: 065
  227. PROPRANOLOL [Suspect]
     Active Substance: PROPRANOLOL HYDROCHLORIDE
     Dosage: 80 MG
     Route: 065
  228. TOPIRAMATE [Suspect]
     Active Substance: TOPIRAMATE
     Indication: Migraine
     Dosage: 25 MG
     Route: 065
  229. PREDNISONE [Suspect]
     Active Substance: PREDNISONE
     Indication: Product used for unknown indication
     Dosage: 2 DF, QD
     Route: 065
  230. LANSOPRAZOLE [Suspect]
     Active Substance: LANSOPRAZOLE
     Indication: Migraine
     Dosage: 30 MG
     Route: 065
  231. AZITHROMYCIN DIHYDRATE [Suspect]
     Active Substance: AZITHROMYCIN DIHYDRATE
     Indication: Product used for unknown indication
     Dosage: 500 MG
     Route: 065
  232. AZITHROMYCIN DIHYDRATE [Suspect]
     Active Substance: AZITHROMYCIN DIHYDRATE
     Dosage: 1 DF, BID
     Route: 065
  233. AZITHROMYCIN DIHYDRATE [Suspect]
     Active Substance: AZITHROMYCIN DIHYDRATE
     Dosage: 2 DF, QD
     Route: 065
  234. VENLAFAXINE HYDROCHLORIDE [Suspect]
     Active Substance: VENLAFAXINE HYDROCHLORIDE
     Indication: Migraine
     Dosage: 75 MG
  235. VENLAFAXINE HYDROCHLORIDE [Suspect]
     Active Substance: VENLAFAXINE HYDROCHLORIDE
     Dosage: 150 MG
  236. RABEPRAZOLE SODIUM [Suspect]
     Active Substance: RABEPRAZOLE SODIUM
     Indication: Migraine
     Dosage: 1 DF, BID
  237. RABEPRAZOLE SODIUM [Suspect]
     Active Substance: RABEPRAZOLE SODIUM
     Dosage: 2 DF, BID
  238. FLUCONAZOLE [Suspect]
     Active Substance: FLUCONAZOLE
     Indication: Product used for unknown indication
     Dosage: UNK
     Route: 065
  239. ALLOPURINOL [Concomitant]
     Active Substance: ALLOPURINOL
     Indication: Product used for unknown indication
     Dosage: 25 MG
     Route: 065
  240. 24HR NASAL ALLERGY RELIEF [Concomitant]
     Indication: Product used for unknown indication
     Dosage: 2 DF
     Route: 065
  241. 24HR NASAL ALLERGY RELIEF [Concomitant]
     Dosage: 1 DF, QD
     Route: 065
  242. 24HR NASAL ALLERGY RELIEF [Concomitant]
     Dosage: 6 DF, QD
     Route: 065
  243. 24HR NASAL ALLERGY RELIEF [Concomitant]
     Dosage: 2 DF 1 EVERY 2 DAYS
     Route: 065
  244. APO-FROVATRIPTAN [Concomitant]
     Indication: Product used for unknown indication
     Dosage: UNK
  245. APO NITROFURANTOIN [Concomitant]
     Indication: Product used for unknown indication
     Dosage: 1 DF, BID
     Route: 065
  246. APO NITROFURANTOIN [Concomitant]
     Dosage: 100 MG
     Route: 065
  247. APO NITROFURANTOIN [Concomitant]
     Dosage: 1 DF
     Route: 065
  248. NAPROXEN [Concomitant]
     Active Substance: NAPROXEN
     Indication: Headache
     Dosage: 1 DF, TID
     Route: 065
  249. NAPROXEN [Concomitant]
     Active Substance: NAPROXEN
     Dosage: 1 DF
     Route: 065
  250. NAPROXEN [Concomitant]
     Active Substance: NAPROXEN
     Dosage: 1 DF
     Route: 065
  251. NAPROXEN [Concomitant]
     Active Substance: NAPROXEN
     Dosage: 1 DF
     Route: 065
  252. ELAVIL [Concomitant]
     Active Substance: AMITRIPTYLINE HYDROCHLORIDE
     Indication: Product used for unknown indication
     Dosage: 25 MG
     Route: 065
  253. CEFUROXIME AXETIL [Concomitant]
     Active Substance: CEFUROXIME AXETIL
     Indication: Product used for unknown indication
     Dosage: 1 DF, BID
     Route: 065
  254. CEFUROXIME AXETIL [Concomitant]
     Active Substance: CEFUROXIME AXETIL
     Dosage: 2 DF, QD
     Route: 065
  255. CEFUROXIME AXETIL [Concomitant]
     Active Substance: CEFUROXIME AXETIL
     Dosage: 3 DF, QD
     Route: 065
  256. CEFUROXIME AXETIL [Concomitant]
     Active Substance: CEFUROXIME AXETIL
     Dosage: 1 DF
     Route: 065
  257. DANAZOL [Concomitant]
     Active Substance: DANAZOL
     Indication: Product used for unknown indication
     Dosage: 1 DF, BID
     Route: 065
  258. DANAZOL [Concomitant]
     Active Substance: DANAZOL
     Dosage: 1 DF
     Route: 065
  259. DANAZOL [Concomitant]
     Active Substance: DANAZOL
     Dosage: 2 DF, QD
     Route: 065
  260. ALBUTEROL [Concomitant]
     Active Substance: ALBUTEROL
     Indication: Product used for unknown indication
     Dosage: UNK
  261. CEFUROXIME SODIUM [Concomitant]
     Active Substance: CEFUROXIME SODIUM
     Indication: Product used for unknown indication
     Dosage: UNK
     Route: 065
  262. CEPHALEXIN [Concomitant]
     Active Substance: CEPHALEXIN
     Indication: Product used for unknown indication
     Dosage: 3 DF
     Route: 065
  263. CEPHALEXIN [Concomitant]
     Active Substance: CEPHALEXIN
     Dosage: 1 DF, TID
     Route: 065
  264. CEPHALEXIN [Concomitant]
     Active Substance: CEPHALEXIN
     Dosage: 3 DF, QD
     Route: 065
  265. FERROUS FUMARATE [Concomitant]
     Active Substance: FERROUS FUMARATE
     Indication: Product used for unknown indication
     Dosage: 300 MG
     Route: 065
  266. FLUOXETINE HYDROCHLORIDE [Concomitant]
     Active Substance: FLUOXETINE HYDROCHLORIDE
     Indication: Product used for unknown indication
     Dosage: 20 MG
     Route: 065
  267. FLUOXETINE HYDROCHLORIDE [Concomitant]
     Active Substance: FLUOXETINE HYDROCHLORIDE
     Dosage: 1 DF, QD
     Route: 065
  268. FLUTICASONE PROPIONATE [Concomitant]
     Active Substance: FLUTICASONE PROPIONATE
     Indication: Product used for unknown indication
     Dosage: 2 DF
     Route: 065
  269. FLUTICASONE PROPIONATE [Concomitant]
     Active Substance: FLUTICASONE PROPIONATE
     Dosage: 6 DF
     Route: 065
  270. FLUTICASONE PROPIONATE [Concomitant]
     Active Substance: FLUTICASONE PROPIONATE
     Dosage: 4 DF
     Route: 065
  271. FROVATRIPTAN SUCCINATE [Concomitant]
     Active Substance: FROVATRIPTAN SUCCINATE
     Indication: Product used for unknown indication
     Dosage: 1 DF, QD
  272. MACROBID [Concomitant]
     Active Substance: NITROFURANTOIN\NITROFURANTOIN MONOHYDRATE
     Indication: Product used for unknown indication
     Dosage: UNK
  273. MACROBID [Concomitant]
     Active Substance: NITROFURANTOIN\NITROFURANTOIN MONOHYDRATE
     Dosage: 1 DF, BID
  274. MACROBID [Concomitant]
     Active Substance: NITROFURANTOIN\NITROFURANTOIN MONOHYDRATE
     Dosage: 100 MG
  275. POLYETHYLENE GLYCOL 3350 [Concomitant]
     Active Substance: POLYETHYLENE GLYCOL 3350
     Indication: Product used for unknown indication
     Dosage: UNK
     Route: 065
  276. METOCLOPRAMIDE [Concomitant]
     Active Substance: METOCLOPRAMIDE
     Indication: Product used for unknown indication
     Dosage: 1 DF, QD
     Route: 065
  277. MORPHINE SULFATE [Concomitant]
     Active Substance: MORPHINE SULFATE
     Indication: Product used for unknown indication
     Dosage: 1 DF, QD
     Route: 065
  278. MORPHINE SULFATE [Concomitant]
     Active Substance: MORPHINE SULFATE
     Dosage: 1 DF, QD
  279. MORPHINE SULFATE [Concomitant]
     Active Substance: MORPHINE SULFATE
     Dosage: 1 DF, QD
  280. MORPHINE SULFATE [Concomitant]
     Active Substance: MORPHINE SULFATE
     Dosage: 1 DF, QD
  281. MORPHINE SULFATE [Concomitant]
     Active Substance: MORPHINE SULFATE
     Dosage: 1 DF, QD
  282. MORPHINE SULFATE [Concomitant]
     Active Substance: MORPHINE SULFATE
     Dosage: 1 DF, QD
  283. MORPHINE SULFATE [Concomitant]
     Active Substance: MORPHINE SULFATE
     Dosage: 1 DF, QD
  284. MORPHINE SULFATE [Concomitant]
     Active Substance: MORPHINE SULFATE
     Dosage: 1 DF, QD
  285. MORPHINE SULFATE [Concomitant]
     Active Substance: MORPHINE SULFATE
     Dosage: 1 DF, QD
  286. NASONEX [Concomitant]
     Active Substance: MOMETASONE FUROATE
     Indication: Product used for unknown indication
     Dosage: 2 DF (SPRAY, METERED DOSE)
     Route: 065
  287. NASONEX [Concomitant]
     Active Substance: MOMETASONE FUROATE
     Dosage: 1 DF, TID (SPRAY, METERED DOSE)
     Route: 065
  288. NASONEX [Concomitant]
     Active Substance: MOMETASONE FUROATE
     Dosage: 2 DF, QD (SPRAY, METERED DOSE)
     Route: 065
  289. NASONEX [Concomitant]
     Active Substance: MOMETASONE FUROATE
     Dosage: 2 DF, QD (SPRAY, METERED DOSE)
     Route: 065
  290. NASONEX [Concomitant]
     Active Substance: MOMETASONE FUROATE
     Dosage: 2 DF, QD (SPRAY, METERED DOSE)
     Route: 065
  291. NASONEX [Concomitant]
     Active Substance: MOMETASONE FUROATE
     Dosage: 2 DF, BID (SPRAY, METERED DOSE)
     Route: 065
  292. NASONEX [Concomitant]
     Active Substance: MOMETASONE FUROATE
     Dosage: 4 DF (SPRAY, METERED DOSE)
     Route: 065
  293. OSELTAMIVIR PHOSPHATE [Concomitant]
     Active Substance: OSELTAMIVIR PHOSPHATE
     Indication: Product used for unknown indication
     Dosage: UNK
  294. PANTOPRAZOLE SODIUM [Concomitant]
     Active Substance: PANTOPRAZOLE SODIUM
     Indication: Product used for unknown indication
     Dosage: 1 DF, BID
     Route: 065
  295. PANTOPRAZOLE SODIUM [Concomitant]
     Active Substance: PANTOPRAZOLE SODIUM
     Indication: Product used for unknown indication
     Dosage: 1 DF, TID
     Route: 065
  296. OSELTAMIVIR [Concomitant]
     Active Substance: OSELTAMIVIR
     Indication: Product used for unknown indication
     Dosage: 1 DF, BID
     Route: 065
  297. OSELTAMIVIR [Concomitant]
     Active Substance: OSELTAMIVIR
     Dosage: 1 DF, TID
     Route: 065
  298. OSELTAMIVIR [Concomitant]
     Active Substance: OSELTAMIVIR
     Dosage: 1 DF
     Route: 065
  299. SULFATRIM [Concomitant]
     Active Substance: SULFAMETHOXAZOLE\TRIMETHOPRIM
     Indication: Product used for unknown indication
     Dosage: 2 DF, BID
     Route: 065
  300. SULFATRIM [Concomitant]
     Active Substance: SULFAMETHOXAZOLE\TRIMETHOPRIM
     Dosage: 100 MG
     Route: 065
  301. SULFATRIM [Concomitant]
     Active Substance: SULFAMETHOXAZOLE\TRIMETHOPRIM
     Dosage: 2 DF, BID
     Route: 065
  302. SULFATRIM [Concomitant]
     Active Substance: SULFAMETHOXAZOLE\TRIMETHOPRIM
     Dosage: 1 DF, BID
     Route: 065
  303. SULFATRIM [Concomitant]
     Active Substance: SULFAMETHOXAZOLE\TRIMETHOPRIM
     Dosage: 2 DF
     Route: 065
  304. SULFATRIM [Concomitant]
     Active Substance: SULFAMETHOXAZOLE\TRIMETHOPRIM
     Dosage: 2 DF, BID
     Route: 065
  305. SULFATRIM [Concomitant]
     Active Substance: SULFAMETHOXAZOLE\TRIMETHOPRIM
     Dosage: 1 DF, BID
     Route: 065
  306. FLUOXETINE [Concomitant]
     Active Substance: FLUOXETINE HYDROCHLORIDE
     Indication: Product used for unknown indication
     Dosage: 20 MG
     Route: 065
  307. FLUTICASONE [Concomitant]
     Active Substance: FLUTICASONE
     Indication: Product used for unknown indication
     Dosage: 4 DF
  308. FLUTICASONE [Concomitant]
     Active Substance: FLUTICASONE
     Dosage: 4 DF
  309. LISINOPRIL [Concomitant]
     Active Substance: LISINOPRIL
     Indication: Migraine
     Dosage: 1 DF, QD
  310. LISINOPRIL [Concomitant]
     Active Substance: LISINOPRIL
     Dosage: 1 DF, QD
  311. SULFADIAZINE\TRIMETHOPRIM [Concomitant]
     Active Substance: SULFADIAZINE\TRIMETHOPRIM
     Indication: Product used for unknown indication

REACTIONS (11)
  - Angioedema [Unknown]
  - Dysphonia [Unknown]
  - Headache [Unknown]
  - Hypersensitivity [Unknown]
  - Swelling face [Unknown]
  - Swollen tongue [Unknown]
  - Drug intolerance [Unknown]
  - Drug ineffective for unapproved indication [Unknown]
  - Drug ineffective [Unknown]
  - Product use in unapproved indication [Unknown]
  - Off label use [Unknown]
